FAERS Safety Report 17824905 (Version 4)
Quarter: 2021Q3

REPORT INFORMATION
  Report Type: Spontaneous
  Country: US (occurrence: US)
  Receive Date: 20200526
  Receipt Date: 20210810
  Transmission Date: 20211014
  Serious: Yes (Other)
  Sender: FDA-Public Use
  Company Number: US-PFIZER INC-2020206326

PATIENT
  Age: 62 Year
  Sex: Female

DRUGS (21)
  1. IBRANCE [Suspect]
     Active Substance: PALBOCICLIB
     Dosage: 125 MG, CYCLIC (1 DAILY FOR 21 DAYS)
     Route: 048
     Dates: end: 20210607
  2. TRAMADOL HCL [Concomitant]
     Active Substance: TRAMADOL HYDROCHLORIDE
     Dosage: 50 MG
  3. IBRANCE [Suspect]
     Active Substance: PALBOCICLIB
     Dosage: 125 MG, CYCLIC (1 DAILY FOR 21 DAYS)
     Route: 048
     Dates: start: 2020
  4. CRANBERRY. [Concomitant]
     Active Substance: CRANBERRY
     Dosage: UNK
  5. VITAMELTS HAIR, SKIN AND NAIL [Concomitant]
     Dosage: UNK
  6. TYLENOL [Concomitant]
     Active Substance: ACETAMINOPHEN
     Dosage: 325 MG
  7. PREGABALIN. [Concomitant]
     Active Substance: PREGABALIN
     Dosage: 75 MG
  8. IBRANCE [Suspect]
     Active Substance: PALBOCICLIB
     Indication: BREAST CANCER
     Dosage: 125 MG, CYCLIC (ONCE DAILY FOR 21 DAYS)
     Route: 048
     Dates: start: 20200404, end: 2020
  9. ADVIL [Concomitant]
     Active Substance: IBUPROFEN
     Dosage: UNK
  10. LUTEIN [Concomitant]
     Active Substance: LUTEIN
     Dosage: 20 MG
  11. EQUATE WOMEN^S 50 PLUS ONE DAILY [Concomitant]
     Dosage: UNK [400?500]
  12. BUTALBITAL AND ACETAMINOPHEN [Concomitant]
     Active Substance: ACETAMINOPHEN\BUTALBITAL
     Dosage: 50?325
  13. TYLENOL PM EXTRA STRENGTH [Concomitant]
     Active Substance: ACETAMINOPHEN\DIPHENHYDRAMINE HYDROCHLORIDE
     Dosage: UNK [500MG?2]
  14. LEVOTHYROXINE SODIUM. [Concomitant]
     Active Substance: LEVOTHYROXINE SODIUM
     Dosage: 50 UG
  15. ASPIRIN EC [Concomitant]
     Active Substance: ASPIRIN
     Dosage: 81 MG
  16. TURMERIC [CURCUMA LONGA] [Concomitant]
     Active Substance: HERBALS\TURMERIC
     Dosage: UNK [450MG?5]
  17. VALSARTAN/HYDROCHLOROTHIAZIDE [Concomitant]
     Active Substance: HYDROCHLOROTHIAZIDE\VALSARTAN
     Dosage: 160 MG?2
  18. CHLORHEXIDINE GLUCONATE. [Concomitant]
     Active Substance: CHLORHEXIDINE GLUCONATE
     Dosage: 0.12 %
  19. FML [Concomitant]
     Active Substance: FLUOROMETHOLONE
     Dosage: UNK
  20. ESCITALOPRAM OXALATE. [Concomitant]
     Active Substance: ESCITALOPRAM OXALATE
     Dosage: 10 MG
  21. PREDNISONE. [Concomitant]
     Active Substance: PREDNISONE
     Dosage: 10 MG

REACTIONS (5)
  - Hot flush [Not Recovered/Not Resolved]
  - Osteomyelitis [Unknown]
  - Sluggishness [Unknown]
  - Diarrhoea [Not Recovered/Not Resolved]
  - White blood cell count decreased [Unknown]

NARRATIVE: CASE EVENT DATE: 2020
